FAERS Safety Report 9518933 (Version 3)
Quarter: 2013Q4

REPORT INFORMATION
  Report Type: Spontaneous
  Country: US (occurrence: US)
  Receive Date: 20130912
  Receipt Date: 20131108
  Transmission Date: 20140711
  Serious: No
  Sender: FDA-Public Use
  Company Number: US-PFIZER INC-2013261671

PATIENT
  Age: 70 Year
  Sex: Female

DRUGS (1)
  1. NITROSTAT [Suspect]
     Indication: CHEST PAIN
     Dosage: 1.2 MG, AS NEEDED (0.4MG PRN X 3 DOSES PER EPISODE)
     Route: 060

REACTIONS (4)
  - Intentional drug misuse [Unknown]
  - Pain [Unknown]
  - Headache [Unknown]
  - Drug ineffective [Unknown]
